FAERS Safety Report 18150949 (Version 4)
Quarter: 2020Q3

REPORT INFORMATION
  Report Type: Spontaneous
  Country: IN (occurrence: IN)
  Receive Date: 20200814
  Receipt Date: 20200831
  Transmission Date: 20201103
  Serious: Yes (Life-Threatening, Hospitalization, Other)
  Sender: FDA-Public Use
  Company Number: IN-MACLEODS PHARMACEUTICALS US LTD-MAC2020027658

PATIENT

DRUGS (1)
  1. AMLODIPINE [Suspect]
     Active Substance: AMLODIPINE BESYLATE
     Indication: SUICIDAL IDEATION
     Dosage: 80 DOSAGE FORM, TOTAL, 80 TABLETS OF 5 MG (TOTAL 400 MG)
     Route: 048

REACTIONS (12)
  - Pulmonary oedema [Recovering/Resolving]
  - Ejection fraction decreased [Recovering/Resolving]
  - Intentional overdose [Recovering/Resolving]
  - Dizziness [Recovering/Resolving]
  - Ventricular hypokinesia [Recovering/Resolving]
  - Sinus tachycardia [Recovering/Resolving]
  - Tachypnoea [Recovering/Resolving]
  - Rales [Recovering/Resolving]
  - Vomiting [Recovering/Resolving]
  - Toxicity to various agents [Recovering/Resolving]
  - Somnolence [Recovering/Resolving]
  - Hypotension [Recovering/Resolving]
